FAERS Safety Report 8244513-3 (Version None)
Quarter: 2012Q1

REPORT INFORMATION
  Report Type: 
  Country: None (occurrence: None)
  Receive Date: 20120329
  Receipt Date: 20120326
  Transmission Date: 20120608
  Serious: Yes (Death, Other)
  Sender: FDA-Public Use
  Company Number: US-BRISTOL-MYERS SQUIBB COMPANY-16477200

PATIENT
  Sex: Male

DRUGS (1)
  1. ABILIFY [Suspect]
     Indication: DEPRESSION

REACTIONS (13)
  - HYPERTENSION [None]
  - HEART RATE IRREGULAR [None]
  - DEATH [None]
  - WEIGHT INCREASED [None]
  - PYREXIA [None]
  - CARDIAC DISORDER [None]
  - BLEPHAROSPASM [None]
  - DIABETES MELLITUS [None]
  - MUSCULOSKELETAL PAIN [None]
  - HYPERSOMNIA [None]
  - MUSCULOSKELETAL STIFFNESS [None]
  - FATIGUE [None]
  - BLOOD CHOLESTEROL INCREASED [None]
